FAERS Safety Report 9813697 (Version 1)
Quarter: 2014Q1

REPORT INFORMATION
  Report Type: Spontaneous
  Country: US (occurrence: US)
  Receive Date: 20140113
  Receipt Date: 20140113
  Transmission Date: 20141002
  Serious: Yes (Death)
  Sender: FDA-Public Use
  Company Number: US-009507513-1401USA002876

PATIENT
  Age: 60 Year
  Sex: Male

DRUGS (1)
  1. EMEND [Suspect]
     Indication: NAUSEA
     Dosage: UNK
     Dates: start: 201308

REACTIONS (2)
  - Death [Fatal]
  - Drug ineffective [Unknown]
